FAERS Safety Report 5340644-6 (Version None)
Quarter: 2007Q2

REPORT INFORMATION
  Report Type: 
  Country: None (occurrence: None)
  Receive Date: 20070405
  Receipt Date: 20070117
  Transmission Date: 20071010
  Serious: No
  Sender: FDA-Public Use
  Company Number: US200612002793

PATIENT
  Age: 55 Year
  Sex: Female

DRUGS (3)
  1. CYMBALTA [Suspect]
     Indication: NIGHT SWEATS
     Dosage: SEE IMAGE
     Dates: start: 20060101
  2. SYNTHROID [Concomitant]
  3. PRAVACHOL [Concomitant]

REACTIONS (1)
  - BLOOD PRESSURE INCREASED [None]
